FAERS Safety Report 5724548-2 (Version None)
Quarter: 2008Q2

REPORT INFORMATION
  Report Type: 
  Country: None (occurrence: None)
  Receive Date: 20080428
  Receipt Date: 20080415
  Transmission Date: 20081010
  Serious: Yes (Other)
  Sender: FDA-Public Use
  Company Number: 2008009382

PATIENT
  Age: 17 Year
  Sex: Female
  Weight: 74 kg

DRUGS (2)
  1. TETRAHYDROZOLINE HYDROCHLORIDE (TETRYZOLINE) [Suspect]
     Dosage: ABOUT 10 TO 15 ML, ORAL
     Route: 048
  2. METOPROLOL TARTRATE [Concomitant]

REACTIONS (13)
  - ABNORMAL DREAMS [None]
  - ACCIDENTAL EXPOSURE [None]
  - ATAXIA [None]
  - DEPRESSED LEVEL OF CONSCIOUSNESS [None]
  - DIZZINESS [None]
  - HEADACHE [None]
  - HYPERTENSION [None]
  - LETHARGY [None]
  - ORTHOSTATIC HYPOTENSION [None]
  - SINUS BRADYCARDIA [None]
  - SINUS CONGESTION [None]
  - SOMNOLENCE [None]
  - SPEECH DISORDER [None]
